FAERS Safety Report 5524465-7 (Version None)
Quarter: 2007Q4

REPORT INFORMATION
  Report Type: 
  Country: None (occurrence: None)
  Receive Date: 20071122
  Receipt Date: 20071113
  Transmission Date: 20080405
  Serious: Yes (Disabling)
  Sender: FDA-Public Use
  Company Number: PHHO2007IT14291

PATIENT
  Age: 46 Year
  Sex: Female
  Weight: 55 kg

DRUGS (5)
  1. ZOLEDRONIC ACID [Suspect]
     Indication: METASTASES TO BONE
     Dosage: 4MG
     Route: 042
     Dates: start: 20070330
  2. VITAMIN D [Concomitant]
  3. CALCIUM [Concomitant]
  4. CHEMOTHERAPEUTICS NOS [Concomitant]
  5. CORTICOSTEROID NOS [Concomitant]

REACTIONS (9)
  - BONE LESION [None]
  - GINGIVITIS [None]
  - OSTEITIS [None]
  - OSTEOMYELITIS [None]
  - PAIN [None]
  - PAIN IN JAW [None]
  - SURGERY [None]
  - SWELLING [None]
  - TOOTH EXTRACTION [None]
